FAERS Safety Report 9399993 (Version 1)
Quarter: 2013Q3

REPORT INFORMATION
  Report Type: Spontaneous
  Country: CO (occurrence: CO)
  Receive Date: 20130715
  Receipt Date: 20130715
  Transmission Date: 20140515
  Serious: Yes (Death)
  Sender: FDA-Public Use
  Company Number: CO-ABBOTT-13P-036-1119099-00

PATIENT
  Sex: Female

DRUGS (1)
  1. SURVANTA [Suspect]
     Indication: PRODUCT USED FOR UNKNOWN INDICATION

REACTIONS (2)
  - Pneumonia [Fatal]
  - Pulmonary haemorrhage [Fatal]
